FAERS Safety Report 15520141 (Version 2)
Quarter: 2018Q4

REPORT INFORMATION
  Report Type: Other
  Country: CN (occurrence: CN)
  Receive Date: 20181017
  Receipt Date: 20181121
  Transmission Date: 20190205
  Serious: Yes (Life-Threatening)
  Sender: FDA-Public Use
  Company Number: CN-GE HEALTHCARE LIFE SCIENCES-2018CSU004172

PATIENT

DRUGS (1)
  1. VISIPAQUE [Suspect]
     Active Substance: IODIXANOL
     Indication: CEREBROVASCULAR ACCIDENT
     Dosage: 90 ML, SINGLE
     Route: 042
     Dates: start: 20180627, end: 20180627

REACTIONS (4)
  - Hypotension [Recovering/Resolving]
  - Tachycardia [Recovering/Resolving]
  - Coma [Recovering/Resolving]
  - Respiratory arrest [Recovering/Resolving]

NARRATIVE: CASE EVENT DATE: 20180627
